FAERS Safety Report 4675078-0 (Version None)
Quarter: 2005Q2

REPORT INFORMATION
  Report Type: 
  Country: None (occurrence: None)
  Receive Date: 20050526
  Receipt Date: 20041213
  Transmission Date: 20051028
  Serious: Yes (Hospitalization, Other)
  Sender: FDA-Public Use
  Company Number: US-MERCK-0412USA02599

PATIENT
  Age: 50 Year
  Sex: Female

DRUGS (2)
  1. VIOXX [Suspect]
     Route: 048
     Dates: start: 19991108, end: 20020313
  2. VIOXX [Suspect]
     Route: 048
     Dates: start: 20020429, end: 20020512

REACTIONS (15)
  - ADVERSE EVENT [None]
  - ANGINA PECTORIS [None]
  - BACK PAIN [None]
  - CARDIAC FAILURE CONGESTIVE [None]
  - CORONARY ARTERY ATHEROSCLEROSIS [None]
  - CORONARY ARTERY DISEASE [None]
  - DIZZINESS [None]
  - DRUG INTOLERANCE [None]
  - EJECTION FRACTION DECREASED [None]
  - MYOCARDIAL INFARCTION [None]
  - NEUROPATHY PERIPHERAL [None]
  - PAIN [None]
  - POLYTRAUMATISM [None]
  - SKIN LESION [None]
  - VENTRICULAR HYPERTROPHY [None]
